FAERS Safety Report 9881735 (Version 12)
Quarter: 2017Q1

REPORT INFORMATION
  Report Type: Spontaneous
  Country: US (occurrence: US)
  Receive Date: 20140207
  Receipt Date: 20170227
  Transmission Date: 20170429
  Serious: Yes (Disabling, Other)
  Sender: FDA-Public Use
  Company Number: US-009507513-99031757

PATIENT
  Sex: Male
  Weight: 99.79 kg

DRUGS (3)
  1. MINERALS (UNSPECIFIED) (+) VITAMINS (UNSPECIFIED) [Concomitant]
     Indication: PRODUCT USED FOR UNKNOWN INDICATION
  2. PROPECIA [Suspect]
     Active Substance: FINASTERIDE
     Indication: ANDROGENETIC ALOPECIA
     Dosage: 1 MG, QD
     Route: 048
     Dates: start: 19980417, end: 2004
  3. CLARITIN [Concomitant]
     Active Substance: LORATADINE
     Indication: PRODUCT USED FOR UNKNOWN INDICATION
     Route: 048

REACTIONS (59)
  - Testicular atrophy [Unknown]
  - Muscle disorder [Unknown]
  - Fatigue [Unknown]
  - Renal cyst [Not Recovered/Not Resolved]
  - Adverse drug reaction [Unknown]
  - Varicocele [Unknown]
  - Prostatitis [Unknown]
  - Urethritis [Unknown]
  - Skin infection [Not Recovered/Not Resolved]
  - Rheumatoid arthritis [Unknown]
  - Irritable bowel syndrome [Unknown]
  - Prostatic specific antigen increased [Unknown]
  - Nocturia [Not Recovered/Not Resolved]
  - Renal impairment [Unknown]
  - Anxiety [Recovering/Resolving]
  - Intervertebral disc protrusion [Unknown]
  - Insomnia [Unknown]
  - Hyperlipidaemia [Not Recovered/Not Resolved]
  - Urine flow decreased [Unknown]
  - Malaise [Unknown]
  - Epididymal cyst [Unknown]
  - Bipolar II disorder [Unknown]
  - Cognitive disorder [Not Recovered/Not Resolved]
  - Injury [Unknown]
  - Blood testosterone decreased [Not Recovered/Not Resolved]
  - Staphylococcal infection [Not Recovered/Not Resolved]
  - Hypercholesterolaemia [Unknown]
  - Cardiac disorder [Unknown]
  - Asthma [Unknown]
  - Hypertension [Not Recovered/Not Resolved]
  - Urinary retention [Not Recovered/Not Resolved]
  - Pollakiuria [Unknown]
  - Back pain [Unknown]
  - Skin disorder [Unknown]
  - Back disorder [Unknown]
  - Cervicogenic headache [Unknown]
  - Therapeutic response decreased [Unknown]
  - Sexual dysfunction [Not Recovered/Not Resolved]
  - Epstein-Barr virus infection [Unknown]
  - Penile pain [Unknown]
  - Hydronephrosis [Unknown]
  - Lethargy [Unknown]
  - Erectile dysfunction [Unknown]
  - Fatigue [Unknown]
  - Sleep apnoea syndrome [Unknown]
  - Haematuria [Not Recovered/Not Resolved]
  - Inguinal hernia [Unknown]
  - Semen volume decreased [Unknown]
  - Plastic surgery [Unknown]
  - Borderline personality disorder [Unknown]
  - Prostatomegaly [Unknown]
  - Hypothyroidism [Unknown]
  - Migraine [Unknown]
  - Benign renal neoplasm [Unknown]
  - Libido decreased [Unknown]
  - Depression [Not Recovered/Not Resolved]
  - Vision blurred [Unknown]
  - Prostatic calcification [Unknown]
  - Hypogonadism [Not Recovered/Not Resolved]

NARRATIVE: CASE EVENT DATE: 1998
